FAERS Safety Report 4411350-7 (Version None)
Quarter: 2004Q3

REPORT INFORMATION
  Report Type: 
  Country: None (occurrence: None)
  Receive Date: 20040729
  Receipt Date: 20040719
  Transmission Date: 20050211
  Serious: Yes (Hospitalization)
  Sender: FDA-Public Use
  Company Number: US-MERCK-0407USA01628

PATIENT
  Age: 87 Year
  Sex: Female

DRUGS (5)
  1. FOSAMAX [Suspect]
     Route: 048
     Dates: start: 19980101, end: 20040719
  2. HYZAAR [Concomitant]
     Route: 048
  3. PREDNISONE [Concomitant]
     Route: 065
  4. ZOCOR [Concomitant]
     Route: 048
  5. COUMADIN [Concomitant]
     Route: 065

REACTIONS (1)
  - GASTROINTESTINAL HAEMORRHAGE [None]
